FAERS Safety Report 4556502-0 (Version None)
Quarter: 2005Q1

REPORT INFORMATION
  Report Type: 
  Country: None (occurrence: None)
  Receive Date: 20050118
  Receipt Date: 20050104
  Transmission Date: 20050727
  Serious: Yes (Death, Hospitalization)
  Sender: FDA-Public Use
  Company Number: US-2004-034370

PATIENT
  Age: 79 Year
  Sex: Male

DRUGS (12)
  1. BETASERON [Suspect]
     Indication: SECONDARY PROGRESSIVE MULTIPLE SCLEROSIS
     Dosage: 8 MIU, EVERY 2D, SUBCUTANEOUS
     Route: 058
     Dates: start: 20021203, end: 20040909
  2. AMANTADINE [Concomitant]
  3. PROVIGIL [Concomitant]
  4. ASPIRIN (BABY) (ACETYLSALICYLIC ACID) [Concomitant]
  5. FLOMAX ^BOEHRINGER INGELHEIM^ (TAMSULOSIN HYDROCHLORIDE) [Concomitant]
  6. LEXAPRO [Concomitant]
  7. VITAMINS NOS [Concomitant]
  8. EFFEXOR [Concomitant]
  9. VALIUM [Concomitant]
  10. DULCOLAX [Concomitant]
  11. SENOKOT /USA/(SENNA ALEXANDRINA) [Concomitant]
  12. ... [Concomitant]

REACTIONS (10)
  - ABDOMINAL PAIN [None]
  - CARDIAC ARREST [None]
  - CONFUSIONAL STATE [None]
  - DEPRESSION [None]
  - DRY MOUTH [None]
  - FATIGUE [None]
  - HAEMOLYTIC ANAEMIA [None]
  - HYPERREFLEXIA [None]
  - MEMORY IMPAIRMENT [None]
  - SECONDARY PROGRESSIVE MULTIPLE SCLEROSIS [None]
